FAERS Safety Report 9088397 (Version 1)
Quarter: 2013Q1

REPORT INFORMATION
  Report Type: Report from Study
  Country: IT (occurrence: IT)
  Receive Date: 20130201
  Receipt Date: 20130201
  Transmission Date: 20140127
  Serious: Yes (Hospitalization)
  Sender: FDA-Public Use
  Company Number: IT-PFIZER INC-2013025444

PATIENT
  Age: 75 Year
  Sex: Male
  Weight: 84 kg

DRUGS (8)
  1. REVATIO [Suspect]
     Indication: PULMONARY HYPERTENSION
     Dosage: 20 MG, 3X/DAY
     Route: 048
     Dates: start: 20121005, end: 20130118
  2. REVATIO [Suspect]
     Indication: CHRONIC OBSTRUCTIVE PULMONARY DISEASE
  3. FUROSEMIDE [Concomitant]
     Dosage: UNK
     Route: 048
     Dates: start: 201210
  4. POTASSIUM CANRENOATE [Concomitant]
     Dosage: UNK
     Dates: start: 201210
  5. ACETYLSALICYLIC ACID [Concomitant]
     Dosage: UNK
     Route: 048
     Dates: start: 201210
  6. HUMALOG [Concomitant]
     Dosage: UNK
     Route: 058
     Dates: start: 201210
  7. LANTUS [Concomitant]
     Dosage: UNK
     Route: 058
     Dates: start: 201210
  8. PANTOPRAZOL [Concomitant]
     Dosage: UNK
     Dates: start: 201210

REACTIONS (1)
  - Hypoxia [Recovering/Resolving]
